FAERS Safety Report 25264521 (Version 1)
Quarter: 2025Q2

REPORT INFORMATION
  Report Type: Report from Study
  Country: US (occurrence: US)
  Receive Date: 20250502
  Receipt Date: 20250502
  Transmission Date: 20250717
  Serious: Yes (Hospitalization)
  Sender: TEVA
  Company Number: US-TEVA-VS-3327245

PATIENT
  Age: 3 Month

DRUGS (1)
  1. CLARAVIS [Suspect]
     Active Substance: ISOTRETINOIN
     Indication: Product used for unknown indication
     Route: 064
     Dates: start: 20240302, end: 20240514

REACTIONS (2)
  - Small for dates baby [Recovered/Resolved]
  - Foetal exposure during pregnancy [Unknown]
